FAERS Safety Report 6334708-8 (Version None)
Quarter: 2009Q3

REPORT INFORMATION
  Report Type: 
  Country: None (occurrence: None)
  Receive Date: 20090831
  Receipt Date: 20090820
  Transmission Date: 20100115
  Serious: Yes (Other)
  Sender: FDA-Public Use
  Company Number: MX-ELI_LILLY_AND_COMPANY-MX200908002946

PATIENT
  Age: 59 Year
  Sex: Male

DRUGS (4)
  1. CIALIS [Suspect]
     Indication: ERECTILE DYSFUNCTION
     Dosage: 20 MG, UNKNOWN
     Route: 048
  2. CIALIS [Suspect]
     Dosage: 10 MG, UNKNOWN
     Route: 048
  3. GLIBENCLAMIDE [Concomitant]
  4. METFORMIN HCL [Concomitant]

REACTIONS (1)
  - BLINDNESS TRANSIENT [None]
